FAERS Safety Report 7500420-2 (Version None)
Quarter: 2011Q2

REPORT INFORMATION
  Report Type: 
  Country: None (occurrence: None)
  Receive Date: 20110524
  Receipt Date: 20110408
  Transmission Date: 20111010
  Serious: No
  Sender: FDA-Public Use
  Company Number: US-BRISTOL-MYERS SQUIBB COMPANY-15592330

PATIENT
  Age: 59 Year
  Sex: Female

DRUGS (5)
  1. SIMVASTATIN [Concomitant]
     Dosage: 1DF=80UNITS NOS
  2. ZETIA [Concomitant]
     Dosage: 1DF=10 UNITS NOS
  3. LOSARTAN POTASSIUM + HCTZ [Concomitant]
     Dosage: 1DF=50/12.5 MG.
  4. METFORMIN HCL [Concomitant]
     Dosage: 1DF=850 UNITS NOS
  5. ONGLYZA [Suspect]
     Indication: TYPE 2 DIABETES MELLITUS
     Route: 048
     Dates: start: 20100816, end: 20110307

REACTIONS (2)
  - DYSURIA [None]
  - CYSTITIS [None]
